FAERS Safety Report 7733993-5 (Version None)
Quarter: 2011Q3

REPORT INFORMATION
  Report Type: 
  Country: None (occurrence: None)
  Receive Date: 20110907
  Receipt Date: 20110826
  Transmission Date: 20111222
  Serious: Yes (Hospitalization)
  Sender: FDA-Public Use
  Company Number: AR-ELI_LILLY_AND_COMPANY-AR201108004665

PATIENT
  Age: 75 Year
  Sex: Female

DRUGS (7)
  1. LEVOTHYROXINE SODIUM [Concomitant]
  2. NIMODIPINE [Concomitant]
  3. OMEPRAZOLE [Concomitant]
  4. CLONAZEPAM [Concomitant]
  5. FORTEO [Suspect]
     Dosage: UNK
     Dates: start: 20110719
  6. LIPOIC ACID [Concomitant]
  7. CARVEDILOL [Concomitant]

REACTIONS (4)
  - COLITIS [None]
  - CARDIAC DISORDER [None]
  - PAIN IN EXTREMITY [None]
  - DISCOMFORT [None]
